FAERS Safety Report 8334395-3 (Version None)
Quarter: 2012Q2

REPORT INFORMATION
  Report Type: 
  Country: None (occurrence: None)
  Receive Date: 20120503
  Receipt Date: 20120423
  Transmission Date: 20120825
  Serious: Yes (Other)
  Sender: FDA-Public Use
  Company Number: CA-JNJFOC-20120410727

PATIENT
  Sex: Female
  Weight: 49.2 kg

DRUGS (4)
  1. TAMOXIFEN CITRATE [Concomitant]
  2. REMICADE [Suspect]
     Indication: CROHN'S DISEASE
     Dosage: ^HAS HAD 44 INFUSIONS^
     Route: 042
  3. PANTOPRAZOLE SODIUM [Concomitant]
  4. FOLIC ACID [Concomitant]

REACTIONS (2)
  - BREAST CANCER [None]
  - INFLUENZA [None]
